FAERS Safety Report 12604882 (Version 2)
Quarter: 2016Q3

REPORT INFORMATION
  Report Type: Spontaneous
  Country: US (occurrence: US)
  Receive Date: 20160728
  Receipt Date: 20160901
  Transmission Date: 20161109
  Serious: No
  Sender: FDA-Public Use
  Company Number: US-ELI_LILLY_AND_COMPANY-US201607003133

PATIENT
  Sex: Male

DRUGS (1)
  1. TALTZ [Suspect]
     Active Substance: IXEKIZUMAB
     Indication: PSORIASIS
     Dosage: 80 MG, SINGLE
     Route: 058
     Dates: start: 20160630

REACTIONS (5)
  - Oedema peripheral [Recovered/Resolved]
  - Limb discomfort [Recovered/Resolved]
  - Feeling hot [Recovered/Resolved]
  - Stasis dermatitis [Recovered/Resolved]
  - Hypersensitivity [Recovered/Resolved]
